FAERS Safety Report 12001828 (Version 3)
Quarter: 2017Q3

REPORT INFORMATION
  Report Type: Report from Study
  Country: None (occurrence: US)
  Receive Date: 20160204
  Receipt Date: 20170920
  Transmission Date: 20171127
  Serious: No
  Sender: FDA-Public Use
  Company Number: US-ABBVIE-15K-163-1430772-00

PATIENT
  Age: 58 Year
  Sex: Female

DRUGS (3)
  1. HUMIRA [Suspect]
     Active Substance: ADALIMUMAB
     Route: 058
  2. HUMIRA [Suspect]
     Active Substance: ADALIMUMAB
     Indication: CROHN^S DISEASE
     Route: 058
     Dates: start: 20150629
  3. HUMIRA [Suspect]
     Active Substance: ADALIMUMAB
     Route: 058
     Dates: start: 20150713, end: 20150713

REACTIONS (13)
  - Dysplastic naevus [Unknown]
  - Discomfort [Unknown]
  - Frequent bowel movements [Unknown]
  - Rheumatoid arthritis [Unknown]
  - Urticaria [Recovering/Resolving]
  - Stress fracture [Unknown]
  - Diarrhoea [Unknown]
  - Injection site bruising [Unknown]
  - Back pain [Unknown]
  - Rash papular [Unknown]
  - Urinary tract infection [Unknown]
  - Injection site urticaria [Unknown]
  - Foot fracture [Unknown]

NARRATIVE: CASE EVENT DATE: 20150713
